FAERS Safety Report 11235763 (Version 5)
Quarter: 2015Q3

REPORT INFORMATION
  Report Type: Spontaneous
  Country: JP (occurrence: JP)
  Receive Date: 20150702
  Receipt Date: 20150910
  Transmission Date: 20151125
  Serious: Yes (Other)
  Sender: FDA-Public Use
  Company Number: JP-B.I. PHARMACEUTICALS,INC./RIDGEFIELD-2015-BI-34627GD

PATIENT
  Age: 69 Year
  Sex: Female
  Weight: 39 kg

DRUGS (9)
  1. WARFARIN [Concomitant]
     Active Substance: WARFARIN
     Indication: ATRIAL FIBRILLATION
     Dosage: 2 MG
     Route: 048
  2. TAKEPRON [Concomitant]
     Active Substance: LANSOPRAZOLE
     Indication: GASTRIC ULCER
     Dosage: 15 MG
     Route: 048
  3. REGPARA [Concomitant]
     Active Substance: CINACALCET HYDROCHLORIDE
     Indication: HYPERPARATHYROIDISM SECONDARY
     Dosage: 50 MG
     Route: 048
  4. ALLOID G [Concomitant]
     Active Substance: SODIUM ALGINATE
     Indication: GASTRIC ULCER
     Dosage: 90 ML
     Route: 048
  5. PLETAAL OD [Concomitant]
     Active Substance: CILOSTAZOL
     Indication: ARTERIAL OCCLUSIVE DISEASE
     Dosage: 200 MG
     Route: 048
  6. HALFDIGOXIN [Concomitant]
     Active Substance: DIGOXIN
     Indication: ATRIAL FIBRILLATION
     Dosage: 0.0312 MG
     Route: 048
  7. TRAZENTA [Suspect]
     Active Substance: LINAGLIPTIN
     Indication: TYPE 2 DIABETES MELLITUS
     Dosage: 5 MG
     Route: 048
     Dates: start: 20140402, end: 20140707
  8. TEGRETOL [Concomitant]
     Active Substance: CARBAMAZEPINE
     Indication: EPILEPSY
     Dosage: 200 MG
     Route: 048
  9. FERROMIA [Concomitant]
     Active Substance: FERROUS CITRATE
     Indication: IRON DEFICIENCY ANAEMIA
     Dosage: 50 MG
     Route: 048

REACTIONS (1)
  - Drug-induced liver injury [Not Recovered/Not Resolved]

NARRATIVE: CASE EVENT DATE: 20140408
